FAERS Safety Report 9079011 (Version 3)
Quarter: 2013Q4

REPORT INFORMATION
  Report Type: Report from Study
  Country: US (occurrence: US)
  Receive Date: 20130215
  Receipt Date: 20131122
  Transmission Date: 20140711
  Serious: Yes (Hospitalization)
  Sender: FDA-Public Use
  Company Number: US-009507513-1302USA002131

PATIENT
  Age: 60 Year
  Sex: Female
  Weight: 94.1 kg

DRUGS (11)
  1. BOCEPREVIR [Suspect]
     Indication: HEPATITIS C VIRUS TEST POSITIVE
     Dosage: 800 MG, TID
     Route: 048
     Dates: start: 20121214, end: 20130222
  2. BOCEPREVIR [Suspect]
     Indication: CHRONIC HEPATITIS C
  3. REBETOL [Suspect]
     Indication: HEPATITIS C VIRUS TEST POSITIVE
     Dosage: UNK
     Route: 048
     Dates: start: 20121116, end: 20130222
  4. PEGINTRON [Suspect]
     Indication: HEPATITIS C VIRUS TEST POSITIVE
     Dosage: UNK
     Dates: start: 20121116, end: 20130222
  5. FUROSEMIDE [Suspect]
     Indication: OEDEMA
     Dosage: 40 MG, BID
     Route: 048
     Dates: start: 20130110, end: 20130202
  6. TOPAMAX [Concomitant]
     Dosage: 50 MG, BID
     Dates: start: 2007
  7. FLEXERIL [Concomitant]
     Dosage: 5 MG TID
     Dates: start: 2007
  8. LOTENSIN (CAPTOPRIL) [Concomitant]
     Dosage: UNK
     Dates: start: 1972
  9. AMLODIPINE [Concomitant]
     Dosage: UNK
     Dates: start: 1972
  10. CYCLOBENZAPRINE HYDROCHLORIDE [Concomitant]
     Dosage: UNK
     Dates: start: 2007
  11. NORVASC [Concomitant]
     Dosage: 5 MG, QD

REACTIONS (9)
  - Encephalopathy [Recovered/Resolved]
  - Hepatic encephalopathy [Unknown]
  - Mental status changes [Recovered/Resolved]
  - Mental status changes [Recovered/Resolved]
  - Muscular weakness [Recovered/Resolved]
  - Renal failure acute [Recovered/Resolved]
  - Leukopenia [Recovered/Resolved]
  - Thrombocytopenia [Recovered/Resolved]
  - Hyponatraemia [Recovered/Resolved]
